FAERS Safety Report 10567436 (Version 1)
Quarter: 2014Q4

REPORT INFORMATION
  Report Type: Report from Study
  Country: GB (occurrence: GB)
  Receive Date: 20141106
  Receipt Date: 20141106
  Transmission Date: 20150529
  Serious: Yes (Other)
  Sender: FDA-Public Use
  Company Number: GB-ACCORD-026817

PATIENT
  Age: 67 Year
  Sex: Female

DRUGS (1)
  1. SIMVASTATIN. [Suspect]
     Active Substance: SIMVASTATIN
     Indication: BLOOD CHOLESTEROL INCREASED
     Dosage: DOSE 20 UNIT UNSPECIFIED
     Route: 048

REACTIONS (5)
  - Quality of life decreased [Unknown]
  - Abnormal dreams [Unknown]
  - Partner stress [Unknown]
  - Insomnia [Unknown]
  - Fatigue [Unknown]
